FAERS Safety Report 10268739 (Version 1)
Quarter: 2014Q2

REPORT INFORMATION
  Report Type: Spontaneous
  Country: US (occurrence: US)
  Receive Date: 20140630
  Receipt Date: 20140630
  Transmission Date: 20141212
  Serious: Yes (Other)
  Sender: FDA-Public Use
  Company Number: US-BAXTER-2014BAX034942

PATIENT
  Age: 9 Day
  Sex: Male
  Weight: 2.5 kg

DRUGS (2)
  1. 0.9% SODIUM CHLORIDE INJECTION [Suspect]
     Indication: DEVICE PRIMING
     Route: 042
     Dates: start: 20140621
  2. BICARBONATE [Suspect]
     Indication: DEVICE PRIMING
     Route: 042
     Dates: start: 20140621

REACTIONS (3)
  - Pneumothorax [Unknown]
  - Bradycardia [Unknown]
  - Hypotension [Unknown]
